FAERS Safety Report 6186406-1 (Version None)
Quarter: 2009Q2

REPORT INFORMATION
  Report Type: 
  Country: None (occurrence: None)
  Receive Date: 20090511
  Receipt Date: 20090506
  Transmission Date: 20091009
  Serious: Yes (Hospitalization, Other)
  Sender: FDA-Public Use
  Company Number: FR-ABBOTT-09P-056-0500071-00

PATIENT
  Sex: Female

DRUGS (2)
  1. MICROPAKINE [Suspect]
     Indication: DRUG USE FOR UNKNOWN INDICATION
     Route: 048
     Dates: start: 20080721, end: 20090121
  2. MICROPAKINE [Suspect]
     Route: 048

REACTIONS (4)
  - DRUG LEVEL BELOW THERAPEUTIC [None]
  - EPILEPSY [None]
  - EXPIRED DRUG ADMINISTERED [None]
  - LIVER DISORDER [None]
